FAERS Safety Report 4808879-6 (Version None)
Quarter: 2005Q4

REPORT INFORMATION
  Report Type: 
  Country: None (occurrence: None)
  Receive Date: 20051025
  Receipt Date: 20051014
  Transmission Date: 20060501
  Serious: Yes (Life-Threatening, Hospitalization)
  Sender: FDA-Public Use
  Company Number: US-JNJFOC-20051003860

PATIENT
  Age: 35 Year
  Sex: Female

DRUGS (1)
  1. TOPAMAX [Suspect]
     Indication: MIGRAINE PROPHYLAXIS

REACTIONS (5)
  - ANAPHYLACTIC REACTION [None]
  - NEPHROLITHIASIS [None]
  - PROCEDURAL COMPLICATION [None]
  - REACTION TO AZO-DYES [None]
  - RESPIRATORY ARREST [None]
